FAERS Safety Report 4829650-5 (Version None)
Quarter: 2005Q4

REPORT INFORMATION
  Report Type: 
  Country: None (occurrence: None)
  Receive Date: 20051116
  Receipt Date: 20050930
  Transmission Date: 20060501
  Serious: Yes (Hospitalization)
  Sender: FDA-Public Use
  Company Number: US-MERCK-0510USA01887

PATIENT
  Age: 74 Year
  Sex: Male

DRUGS (9)
  1. VIOXX [Suspect]
     Indication: POLYMYALGIA RHEUMATICA
     Route: 048
     Dates: start: 20020104, end: 20040301
  2. FLONASE [Concomitant]
     Route: 065
  3. FOSAMAX [Concomitant]
     Route: 065
  4. GLUCOPHAGE [Concomitant]
     Route: 065
  5. PREDNISONE [Concomitant]
     Route: 065
  6. PROSCAR [Concomitant]
     Route: 065
  7. TERAZOSIN HYDROCHLORIDE [Concomitant]
     Route: 065
  8. VIAGRA [Concomitant]
     Route: 065
  9. [THERAPY UNSPECIFIED] [Concomitant]
     Route: 065

REACTIONS (1)
  - MYOCARDIAL INFARCTION [None]
